FAERS Safety Report 20333504 (Version 2)
Quarter: 2022Q1

REPORT INFORMATION
  Report Type: Spontaneous
  Country: JP (occurrence: JP)
  Receive Date: 20220113
  Receipt Date: 20220131
  Transmission Date: 20220423
  Serious: Yes (Other)
  Sender: FDA-Public Use
  Company Number: JP-PFIZER INC-202101409543

PATIENT
  Age: 75 Year
  Sex: Female

DRUGS (17)
  1. XELJANZ [Suspect]
     Active Substance: TOFACITINIB CITRATE
     Indication: Colitis ulcerative
     Dosage: 20 MG, 2X/DAY
     Route: 048
     Dates: start: 20210524, end: 20210606
  2. XELJANZ [Suspect]
     Active Substance: TOFACITINIB CITRATE
     Dosage: 15 MG, 2X/DAY
     Route: 048
     Dates: start: 20210607
  3. PREDONINE [Suspect]
     Active Substance: PREDNISOLONE
     Dosage: 20 MG, DAILY (2 WEEKS)
     Route: 048
     Dates: start: 20210913
  4. PREDONINE [Suspect]
     Active Substance: PREDNISOLONE
     Dosage: 15 MG, DAILY (2 WEEKS)
     Route: 048
  5. PREDONINE [Suspect]
     Active Substance: PREDNISOLONE
     Dosage: 12.5 MG
     Route: 048
     Dates: start: 20211011
  6. PREDONINE [Suspect]
     Active Substance: PREDNISOLONE
     Dosage: 10 MG
     Route: 048
  7. AMLODIPINE BESYLATE [Concomitant]
     Active Substance: AMLODIPINE BESYLATE
     Dosage: 5 MG, 1X/DAY
     Route: 048
     Dates: start: 20191023
  8. VONOPRAZAN FUMARATE [Concomitant]
     Active Substance: VONOPRAZAN FUMARATE
     Dosage: 10 MG, 1X/DAY
     Route: 048
     Dates: start: 20191023
  9. ALENDRONATE SODIUM [Concomitant]
     Active Substance: ALENDRONATE SODIUM
     Dosage: 35 MG, WEEKLY
     Route: 048
     Dates: start: 20191101
  10. SODIUM FERROUS CITRATE [Concomitant]
     Active Substance: SODIUM FERROUS CITRATE
     Dosage: 50 MG, ALTERNATE DAY
     Route: 048
     Dates: start: 20200708
  11. HICEE [ASCORBIC ACID] [Concomitant]
     Dosage: 1 G, ALTERNATE DAY
     Route: 048
     Dates: start: 20200708
  12. RUPAFIN [Concomitant]
     Active Substance: RUPATADINE FUMARATE
     Dosage: 10 MG, 1X/DAY
     Route: 048
     Dates: start: 20210331
  13. SHAKUYAKUKANZOTO [Concomitant]
     Active Substance: HERBALS
     Dosage: 7.5 G, 3X/DAY
     Route: 048
     Dates: start: 20210607
  14. BUDESONIDE [Concomitant]
     Active Substance: BUDESONIDE
     Dosage: 2 DF, TWICE
     Route: 054
     Dates: start: 20200318, end: 202009
  15. BUDESONIDE [Concomitant]
     Active Substance: BUDESONIDE
     Dosage: 2 DF, TWICE
     Route: 054
     Dates: start: 20210203, end: 202104
  16. BUDESONIDE [Concomitant]
     Active Substance: BUDESONIDE
     Dosage: 2 DF, TWICE
     Route: 054
     Dates: start: 20210719
  17. ASPIRIN [Concomitant]
     Active Substance: ASPIRIN
     Dosage: 100 MG, 1X/DAY
     Route: 048
     Dates: start: 20210816

REACTIONS (5)
  - Ovarian neoplasm [Unknown]
  - Hypoaesthesia [Unknown]
  - Gait disturbance [Unknown]
  - Paraesthesia [Unknown]
  - Off label use [Unknown]

NARRATIVE: CASE EVENT DATE: 20211001
